FAERS Safety Report 9424587 (Version 1)
Quarter: 2013Q3

REPORT INFORMATION
  Report Type: Spontaneous
  Country: US (occurrence: US)
  Receive Date: 20130729
  Receipt Date: 20130729
  Transmission Date: 20140515
  Serious: Yes (Other)
  Sender: FDA-Public Use
  Company Number: US-SANOFI-AVENTIS-2013SA075285

PATIENT
  Age: 63 Year
  Sex: Male

DRUGS (2)
  1. LANTUS SOLOSTAR [Suspect]
     Dosage: DOSE:34 UNIT(S)
     Route: 058
  2. SOLOSTAR [Suspect]

REACTIONS (3)
  - Joint injury [Unknown]
  - Muscular weakness [Unknown]
  - Injection site injury [Unknown]
